FAERS Safety Report 5009030-2 (Version None)
Quarter: 2006Q2

REPORT INFORMATION
  Report Type: 
  Country: None (occurrence: None)
  Receive Date: 20060404
  Receipt Date: 20051111
  Transmission Date: 20061013
  Serious: No
  Sender: FDA-Public Use
  Company Number: US200511000625

PATIENT
  Age: 90 Year
  Sex: Male

DRUGS (1)
  1. CYMBALTA [Suspect]
     Indication: PHANTOM PAIN
     Dosage: 30 MG
     Dates: start: 20051101

REACTIONS (3)
  - APATHY [None]
  - DISTURBANCE IN ATTENTION [None]
  - HYPERSOMNIA [None]
